FAERS Safety Report 7636372-4 (Version None)
Quarter: 2011Q3

REPORT INFORMATION
  Report Type: 
  Country: None (occurrence: None)
  Receive Date: 20110726
  Receipt Date: 20110718
  Transmission Date: 20111222
  Serious: Yes (Other)
  Sender: FDA-Public Use
  Company Number: FR-GLAXOSMITHKLINE-B0733596A

PATIENT
  Sex: Male

DRUGS (4)
  1. PREVISCAN [Concomitant]
     Indication: THROMBOSIS PROPHYLAXIS
     Route: 048
     Dates: start: 20100501, end: 20110407
  2. DURAGESIC-12 [Suspect]
     Indication: ARTHRALGIA
     Dosage: 1PAT EVERY 3 DAYS
     Route: 062
     Dates: start: 20110325, end: 20110408
  3. ACETAMINOPHEN [Concomitant]
     Indication: PAIN
     Dosage: 1000MG TWICE PER DAY
     Route: 048
     Dates: start: 20110408, end: 20110418
  4. ARIXTRA [Suspect]
     Indication: THROMBOSIS PROPHYLAXIS
     Dosage: 2.5MG PER DAY
     Route: 065
     Dates: start: 20110408

REACTIONS (2)
  - CONFUSIONAL STATE [None]
  - AGITATION [None]
